FAERS Safety Report 5016812-X (Version None)
Quarter: 2006Q2

REPORT INFORMATION
  Report Type: 
  Country: None (occurrence: None)
  Receive Date: 20060602
  Receipt Date: 20060126
  Transmission Date: 20061013
  Serious: No
  Sender: FDA-Public Use
  Company Number: US-GLAXOSMITHKLINE-A0591090A

PATIENT
  Age: 47 Year
  Sex: Female

DRUGS (4)
  1. AUGMENTIN '125' [Suspect]
     Indication: LOWER RESPIRATORY TRACT INFECTION
     Route: 048
     Dates: start: 20040101
  2. XANAX [Concomitant]
  3. ESKALITH CR [Concomitant]
  4. LORCET-HD [Concomitant]

REACTIONS (1)
  - ORAL MUCOSAL BLISTERING [None]
